FAERS Safety Report 5191657-9 (Version None)
Quarter: 2006Q4

REPORT INFORMATION
  Report Type: 
  Country: None (occurrence: None)
  Receive Date: 20061219
  Receipt Date: 20061127
  Transmission Date: 20070319
  Serious: Yes (Other)
  Sender: FDA-Public Use
  Company Number: 2006152246

PATIENT
  Age: 65 Year
  Sex: Female

DRUGS (2)
  1. EPANUTIN (PHENYTOIN SODIUM) [Suspect]
     Dosage: 300 MG (300 MG, IN 1 D), ORAL
     Route: 048
     Dates: start: 20061011
  2. VALPROATE SODIUM [Concomitant]

REACTIONS (4)
  - HAEMOGLOBIN DECREASED [None]
  - LYMPHOCYTE COUNT DECREASED [None]
  - PLATELET COUNT INCREASED [None]
  - RASH [None]
